FAERS Safety Report 17291544 (Version 4)
Quarter: 2020Q3

REPORT INFORMATION
  Report Type: Report from Study
  Country: IT (occurrence: IT)
  Receive Date: 20200121
  Receipt Date: 20200929
  Transmission Date: 20201102
  Serious: Yes (Death, Hospitalization)
  Sender: FDA-Public Use
  Company Number: IT-BAYER-2019-186388

PATIENT
  Sex: Male

DRUGS (4)
  1. SODIUM CHLORIDE. [Concomitant]
     Active Substance: SODIUM CHLORIDE
     Indication: ASCITES
     Dosage: 2 VIAL AS NEEDED
     Dates: start: 20190905, end: 20190906
  2. GLUTATHIONE [Concomitant]
     Active Substance: GLUTATHIONE
     Indication: ASCITES
     Dosage: 800 MG, PRN
     Dates: start: 20190827, end: 20190906
  3. SOLU?MEDROL [Concomitant]
     Active Substance: METHYLPREDNISOLONE SODIUM SUCCINATE
     Indication: ASCITES
     Dosage: 125 MG, QD
     Dates: start: 20190906, end: 20190906
  4. STIVARGA [Suspect]
     Active Substance: REGORAFENIB
     Indication: HEPATOCELLULAR CARCINOMA
     Dosage: 160 MG
     Dates: start: 20190822, end: 20190906

REACTIONS (4)
  - Blood bilirubin increased [Fatal]
  - Aspartate aminotransferase increased [Fatal]
  - Alanine aminotransferase increased [Fatal]
  - Fatigue [Fatal]

NARRATIVE: CASE EVENT DATE: 20190906
